FAERS Safety Report 11844760 (Version 2)
Quarter: 2016Q1

REPORT INFORMATION
  Report Type: Spontaneous
  Country: CO (occurrence: CO)
  Receive Date: 20151217
  Receipt Date: 20160106
  Transmission Date: 20160526
  Serious: Yes (Hospitalization, Other)
  Sender: FDA-Public Use
  Company Number: ALCN2015CO007865

PATIENT
  Age: 18 Year
  Sex: Male

DRUGS (2)
  1. MYDRIACYL [Suspect]
     Active Substance: TROPICAMIDE
     Indication: PUPIL DILATION PROCEDURE
     Dosage: 1 GTT, ONCE/SINGLE
     Route: 047
     Dates: start: 20151214, end: 20151214
  2. SODIUM CROMOGLYCATE [Concomitant]
     Active Substance: CROMOLYN SODIUM
     Indication: EYE PRURITUS
     Dosage: 1 GTT, Q4H
     Route: 047
     Dates: start: 20151112

REACTIONS (1)
  - Seizure [Recovered/Resolved]

NARRATIVE: CASE EVENT DATE: 20151214
